FAERS Safety Report 19386302 (Version 1)
Quarter: 2021Q2

REPORT INFORMATION
  Report Type: Spontaneous
  Country: NL (occurrence: NL)
  Receive Date: 20210608
  Receipt Date: 20210608
  Transmission Date: 20210717
  Serious: Yes (Hospitalization)
  Sender: FDA-Public Use
  Company Number: NL-AUROBINDO-AUR-APL-2017-03997

PATIENT
  Age: 39 Year
  Sex: Female

DRUGS (1)
  1. DICLOFENACNATRIUM 100 MG SUPPOSITORY [Suspect]
     Active Substance: DICLOFENAC SODIUM
     Indication: PRODUCT USED FOR UNKNOWN INDICATION
     Dosage: 100 MILLIGRAM
     Route: 054

REACTIONS (4)
  - Anaphylactic shock [Recovered/Resolved]
  - Swelling [Recovered/Resolved]
  - Respiratory failure [Recovered/Resolved]
  - Hypotension [Recovered/Resolved]
